FAERS Safety Report 7867634-3 (Version None)
Quarter: 2011Q4

REPORT INFORMATION
  Report Type: 
  Country: None (occurrence: None)
  Receive Date: 20111028
  Receipt Date: 20111026
  Transmission Date: 20120403
  Serious: Yes (Death)
  Sender: FDA-Public Use
  Company Number: PHEH2011US06613

PATIENT
  Sex: Female

DRUGS (22)
  1. ZONISAMIDE [Concomitant]
     Dosage: 1 DF, QD
     Route: 048
     Dates: start: 20110728
  2. BACLOFEN [Concomitant]
     Dosage: 0.5 DF, QD
     Route: 048
     Dates: start: 20110728
  3. DITROPAN XL [Concomitant]
     Dosage: 1 DF, QD
     Route: 048
     Dates: start: 20110922
  4. PHENOTHIAZINE [Concomitant]
  5. TIZANIDINE HCL [Concomitant]
     Dosage: 1 DF, BID
     Dates: start: 20110728
  6. ALPRAZOLAM [Concomitant]
     Dosage: 1 DF, BID
     Route: 048
  7. SPIRONOLACTONE [Concomitant]
     Dosage: 1 DF, BID
     Route: 048
  8. MACROBID [Concomitant]
     Dosage: 1 DF, QD
     Route: 048
     Dates: start: 20110728
  9. KETOROLAC TROMETHAMINE [Concomitant]
     Dosage: 2 ML WITH A MAX OF 4 ML, QW
     Dates: start: 20110728
  10. PROMETHAZINE [Concomitant]
     Dosage: 25 MG, TID PRN
     Route: 048
     Dates: start: 20110728
  11. DILAUDID [Concomitant]
     Dosage: 5 DF, QD
     Route: 048
     Dates: start: 20110728
  12. OXYCODONE AND ACETAMINOPHEN [Concomitant]
     Dosage: 1 DF OXYCODONE 5MG+ ACETAMINOPHEN 500MG, PRN
     Route: 048
     Dates: start: 20110825
  13. NEURONTIN [Concomitant]
     Dosage: 2 DF, TID
     Route: 048
     Dates: start: 20110728
  14. FUROSEMIDE [Concomitant]
     Dosage: 1 DF, BID
     Route: 048
     Dates: start: 20110728
  15. CLONAZEPAM [Concomitant]
     Dosage: 1 DF, BID
     Route: 048
     Dates: start: 20110728
  16. COUMADIN [Concomitant]
     Dosage: 68 MG, QW
     Route: 048
     Dates: start: 20110922
  17. GILENYA [Suspect]
     Dosage: 0.5 MG, QD
     Route: 048
     Dates: start: 20110728
  18. CHANTIX [Concomitant]
     Dosage: 1 DF, BID
     Route: 048
     Dates: start: 20110728
  19. CYMBALTA [Concomitant]
     Dosage: 2 DF, QD
     Route: 048
     Dates: start: 20110728
  20. NUCYNTA [Concomitant]
     Dosage: 1 DF, 5QD, AS NEEDED
     Route: 048
     Dates: start: 20110728
  21. AMBIEN [Concomitant]
     Dosage: 1 DF, QHS
     Route: 048
     Dates: start: 20110922
  22. ABILIFY [Concomitant]
     Dosage: 1 DF, QD
     Route: 048
     Dates: start: 20110825

REACTIONS (1)
  - DEATH [None]
